FAERS Safety Report 4566513-7 (Version None)
Quarter: 2005Q1

REPORT INFORMATION
  Report Type: 
  Country: None (occurrence: None)
  Receive Date: 20050128
  Receipt Date: 20050120
  Transmission Date: 20050727
  Serious: Yes (Other)
  Sender: FDA-Public Use
  Company Number: 230006M05USA

PATIENT
  Age: 28 Year
  Sex: Female

DRUGS (2)
  1. REBIF [Suspect]
     Indication: MULTIPLE SCLEROSIS
     Dosage: 44 MCG, 3 IN 1 WEEKS
     Dates: start: 20040601, end: 20040801
  2. CORTICOSTEROIDS [Concomitant]

REACTIONS (2)
  - AUTOIMMUNE HEPATITIS [None]
  - LIVER TRANSPLANT [None]
